FAERS Safety Report 5934569-2 (Version None)
Quarter: 2008Q4

REPORT INFORMATION
  Report Type: 
  Country: None (occurrence: None)
  Receive Date: 20081029
  Receipt Date: 20081018
  Transmission Date: 20090506
  Serious: Yes (Other)
  Sender: FDA-Public Use
  Company Number: US-PFIZER INC-2008074946

PATIENT
  Sex: Female
  Weight: 160 kg

DRUGS (5)
  1. GEODON [Suspect]
     Indication: BIPOLAR DISORDER
     Route: 048
     Dates: start: 20060601
  2. DEPAKOTE [Suspect]
  3. LITHIUM CARBONATE [Concomitant]
  4. NEURONTIN [Concomitant]
  5. ANAFRANIL [Concomitant]

REACTIONS (3)
  - DRUG LEVEL BELOW THERAPEUTIC [None]
  - MEMORY IMPAIRMENT [None]
  - MENTAL IMPAIRMENT [None]
